FAERS Safety Report 13627536 (Version 1)
Quarter: 2017Q2

REPORT INFORMATION
  Report Type: Spontaneous
  Country: US (occurrence: US)
  Receive Date: 20170531
  Receipt Date: 20170531
  Transmission Date: 20170830
  Serious: Yes (Hospitalization)
  Sender: FDA-Public Use
  Company Number: US-ASTELLAS-1521017

PATIENT
  Age: 66 Year
  Sex: Female

DRUGS (6)
  1. SULINDAC. [Concomitant]
     Active Substance: SULINDAC
  2. TRAZODONE [Concomitant]
     Active Substance: TRAZODONE HYDROCHLORIDE
  3. OXYCODONE [Concomitant]
     Active Substance: OXYCODONE
  4. LORAZEPAM. [Concomitant]
     Active Substance: LORAZEPAM
  5. ABILIFY [Concomitant]
     Active Substance: ARIPIPRAZOLE
  6. TARCEVA [Suspect]
     Active Substance: ERLOTINIB HYDROCHLORIDE
     Indication: LUNG NEOPLASM MALIGNANT
     Route: 048
     Dates: start: 20100731

REACTIONS (2)
  - Cystitis [Recovered/Resolved]
  - Pneumonia [Recovered/Resolved]

NARRATIVE: CASE EVENT DATE: 20150110
